FAERS Safety Report 5377764-6 (Version None)
Quarter: 2007Q3

REPORT INFORMATION
  Report Type: 
  Country: None (occurrence: None)
  Receive Date: 20070703
  Receipt Date: 20070628
  Transmission Date: 20080115
  Serious: Yes (Death, Hospitalization)
  Sender: FDA-Public Use
  Company Number: BR-ABBOTT-07P-020-0373147-00

PATIENT
  Sex: Female

DRUGS (2)
  1. KALETRA [Suspect]
     Indication: HIV INFECTION
     Route: 048
     Dates: start: 20060706, end: 20070520
  2. TRUVADA [Concomitant]
     Indication: HIV INFECTION
     Route: 048
     Dates: start: 20060706, end: 20070520

REACTIONS (5)
  - GASTROINTESTINAL NECROSIS [None]
  - LACTIC ACIDOSIS [None]
  - PROCEDURAL COMPLICATION [None]
  - SEPTIC SHOCK [None]
  - THROMBOSIS MESENTERIC VESSEL [None]
